FAERS Safety Report 8743042 (Version 2)
Quarter: 2012Q4

REPORT INFORMATION
  Report Type: 
  Country: US (occurrence: US)
  Receive Date: 20120824
  Receipt Date: 20121019
  Transmission Date: 20130627
  Serious: Yes (Other)
  Sender: FDA-Public Use
  Company Number: US-BAYER-2012-086741

PATIENT
  Age: 34 Year
  Sex: Female
  Weight: 68.03 kg

DRUGS (4)
  1. MIRENA [Suspect]
     Indication: CONTRACEPTION
     Dosage: 20 mcg/24hr, CONT
     Route: 015
     Dates: start: 20120726, end: 20120731
  2. MIRENA [Suspect]
     Indication: DYSMENORRHOEA
  3. MIRENA [Suspect]
     Indication: ENDOMETRIOSIS
  4. CYTOTEC [Concomitant]
     Dosage: UNK
     Dates: start: 201207

REACTIONS (2)
  - Uterine perforation [Recovered/Resolved]
  - Pelvic pain [Recovered/Resolved]
